FAERS Safety Report 23182269 (Version 1)
Quarter: 2023Q4

REPORT INFORMATION
  Report Type: Spontaneous
  Country: US (occurrence: US)
  Receive Date: 20231114
  Receipt Date: 20231114
  Transmission Date: 20240110
  Serious: Yes (Other)
  Sender: FDA-Public Use
  Company Number: US-MYLANLABS-2023M1120214

PATIENT
  Age: 14 Year
  Sex: Female
  Weight: 66.5 kg

DRUGS (2)
  1. TACROLIMUS [Interacting]
     Active Substance: TACROLIMUS
     Indication: Immunosuppressant drug therapy
     Dosage: UNK
     Route: 065
  2. PAXLOVID [Interacting]
     Active Substance: NIRMATRELVIR\RITONAVIR
     Indication: COVID-19
     Dosage: UNK, SHE WAS PRESCRIBED OVER THE PHONE ON A WEEKEND NIM-RTV AT AN OUTSIDE PHARMACY WITHOUT REDUCTION
     Route: 065

REACTIONS (3)
  - Drug interaction [Recovering/Resolving]
  - Toxicity to various agents [Recovering/Resolving]
  - Acute kidney injury [Recovering/Resolving]
